FAERS Safety Report 8517924-6 (Version None)
Quarter: 2012Q3

REPORT INFORMATION
  Report Type: 
  Country: None (occurrence: None)
  Receive Date: 20120718
  Receipt Date: 20110719
  Transmission Date: 20120928
  Serious: No
  Sender: FDA-Public Use
  Company Number: US-BRISTOL-MYERS SQUIBB COMPANY-15911753

PATIENT
  Age: 57 Year
  Sex: Female

DRUGS (2)
  1. SOTALOL HCL [Concomitant]
  2. COUMADIN [Suspect]
     Indication: ARTERIAL OCCLUSIVE DISEASE
     Dates: start: 20110716

REACTIONS (1)
  - INTERNATIONAL NORMALISED RATIO FLUCTUATION [None]
